FAERS Safety Report 24358784 (Version 3)
Quarter: 2024Q4

REPORT INFORMATION
  Report Type: Spontaneous
  Country: CA (occurrence: CA)
  Receive Date: 20240924
  Receipt Date: 20241120
  Transmission Date: 20250115
  Serious: Yes (Other)
  Sender: PFIZER
  Company Number: CA-PFIZER INC-202200275506

PATIENT
  Age: 44 Year
  Sex: Male

DRUGS (3)
  1. SOMATROPIN [Suspect]
     Active Substance: SOMATROPIN
     Indication: Growth hormone deficiency
     Dosage: 200 UG 7X/WEEK
     Route: 058
  2. SOMATROPIN [Suspect]
     Active Substance: SOMATROPIN
     Dosage: 300 UG, 1X/DAY
     Route: 058
  3. SOMATROPIN [Suspect]
     Active Substance: SOMATROPIN
     Dosage: 200 UG, DAILY
     Route: 058

REACTIONS (16)
  - Diabetes mellitus [Unknown]
  - Hypertension [Recovered/Resolved]
  - Insulin-like growth factor decreased [Not Recovered/Not Resolved]
  - Blood thyroid stimulating hormone increased [Not Recovered/Not Resolved]
  - Cortisol decreased [Not Recovered/Not Resolved]
  - Dizziness postural [Unknown]
  - Proteinuria [Unknown]
  - International normalised ratio increased [Unknown]
  - Blood creatine increased [Unknown]
  - Glomerular filtration rate decreased [Unknown]
  - Alanine aminotransferase increased [Unknown]
  - Thyroxine increased [Unknown]
  - Blood thyroid stimulating hormone decreased [Unknown]
  - Blood triglycerides increased [Unknown]
  - Urine albumin/creatinine ratio increased [Unknown]
  - Product prescribing error [Unknown]

NARRATIVE: CASE EVENT DATE: 20221213
